FAERS Safety Report 13974185 (Version 1)
Quarter: 2017Q3

REPORT INFORMATION
  Report Type: Spontaneous
  Country: US (occurrence: US)
  Receive Date: 20170915
  Receipt Date: 20170915
  Transmission Date: 20171128
  Serious: No
  Sender: FDA-Public Use
  Company Number: US-BAUSCH-BL-2017-020585

PATIENT
  Age: 73 Year
  Sex: Female
  Weight: 79.45 kg

DRUGS (5)
  1. BENICAR [Concomitant]
     Active Substance: OLMESARTAN MEDOXOMIL
     Indication: HYPERTENSION
  2. SYNTHROID [Concomitant]
     Active Substance: LEVOTHYROXINE SODIUM
     Indication: HYPOTHYROIDISM
  3. EFUDEX [Suspect]
     Active Substance: FLUOROURACIL
     Indication: VITILIGO
     Dosage: DAILY TO HER ARMS
     Route: 061
     Dates: start: 20170626
  4. EFUDEX [Suspect]
     Active Substance: FLUOROURACIL
     Indication: SKIN CANCER
  5. LANTUS [Concomitant]
     Active Substance: INSULIN GLARGINE
     Indication: DIABETES MELLITUS

REACTIONS (1)
  - Application site pruritus [Recovering/Resolving]

NARRATIVE: CASE EVENT DATE: 201706
